FAERS Safety Report 5409802-6 (Version None)
Quarter: 2007Q3

REPORT INFORMATION
  Report Type: 
  Country: None (occurrence: None)
  Receive Date: 20070809
  Receipt Date: 20070808
  Transmission Date: 20080115
  Serious: Yes (Hospitalization)
  Sender: FDA-Public Use
  Company Number: US-BRISTOL-MYERS SQUIBB COMPANY-13673769

PATIENT
  Age: 63 Year
  Sex: Female
  Weight: 79 kg

DRUGS (8)
  1. PACLITAXEL [Suspect]
     Indication: NON-SMALL CELL LUNG CANCER
     Route: 042
     Dates: start: 20070110, end: 20070110
  2. CARBOPLATIN [Suspect]
     Indication: NON-SMALL CELL LUNG CANCER
     Route: 042
     Dates: start: 20070110, end: 20070110
  3. NORCO [Concomitant]
     Indication: PAIN
     Dosage: 10/325 MG EVERY 4-6 HOURS AS NEEDED FOR PAIN
     Route: 048
     Dates: start: 20061006
  4. COLACE [Concomitant]
     Route: 048
     Dates: start: 20061006
  5. LUNESTA [Concomitant]
     Route: 048
     Dates: start: 20061006
  6. PROTONIX [Concomitant]
     Indication: GASTROOESOPHAGEAL REFLUX DISEASE
     Route: 048
     Dates: start: 20061224
  7. COUMADIN [Concomitant]
     Indication: ANTICOAGULANT THERAPY
     Route: 048
     Dates: start: 20061127
  8. MS CONTIN [Concomitant]
     Route: 048
     Dates: start: 20061006

REACTIONS (3)
  - ANAEMIA [None]
  - DEHYDRATION [None]
  - THROMBOCYTOPENIA [None]
